FAERS Safety Report 4266075-8 (Version None)
Quarter: 2004Q1

REPORT INFORMATION
  Report Type: 
  Country: None (occurrence: None)
  Receive Date: 20040106
  Receipt Date: 20031222
  Transmission Date: 20041129
  Serious: Yes (Hospitalization)
  Sender: FDA-Public Use
  Company Number: 2003-06493

PATIENT
  Age: 47 Year
  Sex: Female

DRUGS (3)
  1. VIREAD [Suspect]
     Indication: HIV INFECTION
     Dosage: 300 MG QD PO
     Route: 048
  2. VIDEX [Suspect]
     Indication: HIV INFECTION
     Dosage: 250 MG QD PO
     Route: 048
  3. VIRACEPT [Suspect]
     Indication: HIV INFECTION

REACTIONS (2)
  - MITOCHONDRIAL TOXICITY [None]
  - PAROTITIS [None]
